FAERS Safety Report 17159213 (Version 1)
Quarter: 2019Q4

REPORT INFORMATION
  Report Type: Spontaneous
  Country: ES (occurrence: ES)
  Receive Date: 20191215
  Receipt Date: 20191215
  Transmission Date: 20200122
  Serious: Yes (Disabling)
  Sender: FDA-Public Use
  Company Number: None

PATIENT
  Age: 48 Year
  Sex: Female
  Weight: 60 kg

DRUGS (4)
  1. TAVANIC 500MG [Suspect]
     Active Substance: LEVOFLOXACIN
     Indication: HELICOBACTER INFECTION
     Route: 048
     Dates: start: 20191208, end: 20191214
  2. CLAMOXYL 1 G [Concomitant]
  3. BIOTINE [Concomitant]
  4. GASTRUS AND NEXIUM [Concomitant]

REACTIONS (3)
  - Apraxia [None]
  - Pain [None]
  - Arthralgia [None]

NARRATIVE: CASE EVENT DATE: 20191208
